FAERS Safety Report 8603286-2 (Version None)
Quarter: 2012Q3

REPORT INFORMATION
  Report Type: 
  Country: None (occurrence: None)
  Receive Date: 20120817
  Receipt Date: 20120809
  Transmission Date: 20120928
  Serious: Yes (Hospitalization)
  Sender: FDA-Public Use
  Company Number: US-ABBOTT-12P-163-0967818-00

PATIENT
  Sex: Female
  Weight: 61.744 kg

DRUGS (2)
  1. LEVOXYL [Concomitant]
     Indication: HYPOTHYROIDISM
  2. HUMIRA [Suspect]
     Indication: RHEUMATOID ARTHRITIS
     Dates: start: 20060101, end: 20120226

REACTIONS (5)
  - HIATUS HERNIA [None]
  - NODULE [None]
  - RHEUMATOID ARTHRITIS [None]
  - RENAL FAILURE [None]
  - PAIN IN EXTREMITY [None]
